FAERS Safety Report 9491859 (Version 1)
Quarter: 2013Q3

REPORT INFORMATION
  Report Type: Not Available
  Country: US (occurrence: US)
  Receive Date: 20130919
  Receipt Date: 20130919
  Transmission Date: 20140515
  Serious: Yes (Other)
  Sender: FDA-Public Use
  Company Number: US-LUNDBECK-DKLU1083822

PATIENT
  Sex: Female

DRUGS (5)
  1. SABRIL (TABLET) [Suspect]
     Indication: GRAND MAL CONVULSION
     Dates: start: 20120622
  2. SABRIL (TABLET) [Suspect]
     Dosage: UNSPECIFIED TAPERED DOSE
     Dates: start: 20120705
  3. DILANTIN [Concomitant]
     Indication: PRODUCT USED FOR UNKNOWN INDICATION
  4. PHENOBARBITAL [Concomitant]
     Indication: PRODUCT USED FOR UNKNOWN INDICATION
  5. DIAMOX [Concomitant]
     Indication: PRODUCT USED FOR UNKNOWN INDICATION

REACTIONS (3)
  - Convulsion [Unknown]
  - Nausea [Unknown]
  - Asthenia [Unknown]
